FAERS Safety Report 6862843-4 (Version None)
Quarter: 2010Q3

REPORT INFORMATION
  Report Type: 
  Country: None (occurrence: None)
  Receive Date: 20100721
  Receipt Date: 20100713
  Transmission Date: 20110219
  Serious: Yes (Other)
  Sender: FDA-Public Use
  Company Number: A0870197A

PATIENT
  Age: 56 Year
  Sex: Male

DRUGS (2)
  1. COMBIVIR [Suspect]
     Indication: PRODUCT USED FOR UNKNOWN INDICATION
     Dosage: 2TAB UNKNOWN
     Route: 048
  2. VIRACEPT [Suspect]
     Indication: PRODUCT USED FOR UNKNOWN INDICATION
     Dosage: 9TAB UNKNOWN

REACTIONS (2)
  - CATARACT [None]
  - VISUAL IMPAIRMENT [None]
